FAERS Safety Report 10745942 (Version 1)
Quarter: 2015Q1

REPORT INFORMATION
  Report Type: Spontaneous
  Country: US (occurrence: US)
  Receive Date: 20150128
  Receipt Date: 20150128
  Transmission Date: 20150721
  Serious: Yes (Hospitalization)
  Sender: FDA-Public Use
  Company Number: US-JNJFOC-20150116781

PATIENT
  Sex: Male

DRUGS (1)
  1. XARELTO [Suspect]
     Active Substance: RIVAROXABAN
     Indication: PULMONARY EMBOLISM
     Route: 048
     Dates: start: 201408, end: 201412

REACTIONS (7)
  - Epistaxis [Unknown]
  - Chest pain [Unknown]
  - Bradyphrenia [Unknown]
  - Pain in extremity [Unknown]
  - Gastrointestinal haemorrhage [Unknown]
  - Confusional state [Unknown]
  - Liver injury [Unknown]

NARRATIVE: CASE EVENT DATE: 2014
